FAERS Safety Report 8725416 (Version 3)
Quarter: 2013Q1

REPORT INFORMATION
  Report Type: Spontaneous
  Country: BE (occurrence: BE)
  Receive Date: 20120815
  Receipt Date: 20130122
  Transmission Date: 20140127
  Serious: Yes (Other)
  Sender: FDA-Public Use
  Company Number: BE-BRISTOL-MYERS SQUIBB COMPANY-16845588

PATIENT
  Age: 61 Year
  Sex: Male
  Weight: 79 kg

DRUGS (12)
  1. YERVOY [Suspect]
     Indication: MALIGNANT MELANOMA
     Dosage: INF:2-25JUN12?3MG/KG-1/3WKS X 4
     Route: 042
     Dates: start: 20120625
  2. DEPAKINE [Concomitant]
     Dosage: 1DF= 500-UNITS NOS
  3. MEDROL [Concomitant]
     Dosage: 1DF= 32-UNITS NOS
  4. PARACETAMOL [Concomitant]
  5. BISOPROLOL [Concomitant]
     Dosage: 1DF= 5-UNITS NOS
  6. LYRICA [Concomitant]
     Dosage: 1DF= 75-UNITS NOS
  7. ZESTRIL [Concomitant]
     Dosage: 1DF= 20-UNITS NOS
  8. ACICLOVIR [Concomitant]
     Dosage: 1DF= 850-UNITS NOS
  9. GLUCOPHAGE [Concomitant]
     Dosage: 1DF= 850-UNITS NOS
  10. LIPITOR [Concomitant]
     Dosage: 1DF= 20-UNITS NOS
  11. METFORMIN [Concomitant]
  12. UNI DIAMICRON [Concomitant]

REACTIONS (2)
  - Radiation skin injury [Recovered/Resolved]
  - Transaminases increased [Unknown]
